FAERS Safety Report 7323829-9 (Version None)
Quarter: 2011Q1

REPORT INFORMATION
  Report Type: 
  Country: None (occurrence: None)
  Receive Date: 20110301
  Receipt Date: 20110221
  Transmission Date: 20110831
  Serious: Yes (Hospitalization)
  Sender: FDA-Public Use
  Company Number: A0897740A

PATIENT
  Age: 68 Year
  Sex: Female
  Weight: 65.9 kg

DRUGS (2)
  1. AVANDAMET [Suspect]
     Route: 048
     Dates: end: 20090709
  2. AVANDIA [Suspect]
     Dosage: 2MG TWICE PER DAY
     Route: 048

REACTIONS (4)
  - CEREBROVASCULAR ACCIDENT [None]
  - ISCHAEMIC CARDIOMYOPATHY [None]
  - CARDIAC FAILURE CONGESTIVE [None]
  - CORONARY ARTERY DISEASE [None]
